FAERS Safety Report 8325461-7 (Version None)
Quarter: 2012Q2

REPORT INFORMATION
  Report Type: 
  Country: None (occurrence: None)
  Receive Date: 20120501
  Receipt Date: 20120425
  Transmission Date: 20120825
  Serious: Yes (Other)
  Sender: FDA-Public Use
  Company Number: PHHY2012CA035393

PATIENT
  Sex: Female
  Weight: 72.1 kg

DRUGS (10)
  1. CALCIUM [Concomitant]
     Dosage: 500 UKN, UNK
  2. SYNTHROID [Concomitant]
     Dosage: 0.075 MG, UNK
  3. ZOLEDRONOC ACID [Suspect]
     Indication: OSTEOPOROSIS
     Dosage: UNK UKN, UNK
     Route: 042
  4. LIPITOR [Concomitant]
     Dosage: 40 MG, UNK
  5. OLMESARTAN MEDOXOMIL [Concomitant]
  6. PANTOPRAZOLE SODIUM [Concomitant]
     Dosage: 40 MG, UNK
  7. HYDROCHLOROTHIAZIDE [Concomitant]
     Dosage: 25 MG, UNK
  8. PROLIA [Concomitant]
     Dosage: UNK UKN, UNK
     Dates: start: 20110726
  9. ADVAIR DISKUS 100/50 [Concomitant]
     Dosage: UNK UKN, UNK
  10. VITAMIN D [Concomitant]
     Dosage: 1000 UKN, UNK

REACTIONS (3)
  - DISORIENTATION [None]
  - SPEECH DISORDER [None]
  - CONFUSIONAL STATE [None]
